FAERS Safety Report 6111018-5 (Version None)
Quarter: 2009Q1

REPORT INFORMATION
  Report Type: 
  Country: None (occurrence: None)
  Receive Date: 20090311
  Receipt Date: 20090305
  Transmission Date: 20090719
  Serious: Yes (Death, Other)
  Sender: FDA-Public Use
  Company Number: PHBS2008JP05699

PATIENT
  Age: 35 Year
  Sex: Male

DRUGS (3)
  1. CYCLOSPORINE [Suspect]
     Indication: STEM CELL TRANSPLANT
     Dosage: 320 MG/DAY
  2. PREDNISOLONE [Suspect]
     Indication: STEM CELL TRANSPLANT
     Dosage: 8 MG/DAY
  3. POLYMYXIN B SULFATE [Concomitant]
     Indication: PROPHYLAXIS

REACTIONS (4)
  - CLOSTRIDIAL INFECTION [None]
  - DIARRHOEA [None]
  - PNEUMONIA [None]
  - PYREXIA [None]
